FAERS Safety Report 8823000 (Version 1)
Quarter: 2012Q4

REPORT INFORMATION
  Report Type: 
  Country: US (occurrence: US)
  Receive Date: 20121003
  Receipt Date: 20121003
  Transmission Date: 20130627
  Serious: Yes (Other)
  Sender: FDA-Public Use
  Company Number: US-009507513-1207USA010066

PATIENT
  Age: 48 Year
  Sex: Male

DRUGS (2)
  1. JANUVIA [Suspect]
     Dosage: 100 mg, qd
     Route: 048
  2. BYETTA [Suspect]
     Dosage: 5 Microgram, bid
     Route: 058

REACTIONS (3)
  - Lipase increased [Unknown]
  - Amylase increased [Unknown]
  - Nausea [Unknown]
